FAERS Safety Report 6829725-5 (Version None)
Quarter: 2010Q3

REPORT INFORMATION
  Report Type: 
  Country: None (occurrence: None)
  Receive Date: 20100709
  Receipt Date: 20070625
  Transmission Date: 20110219
  Serious: No
  Sender: FDA-Public Use
  Company Number: US-PFIZER INC-2007015679

PATIENT
  Sex: Male
  Weight: 78.47 kg

DRUGS (1)
  1. CHANTIX [Suspect]
     Indication: SMOKING CESSATION THERAPY
     Route: 048
     Dates: start: 20070227

REACTIONS (2)
  - DYSPHONIA [None]
  - LOWER RESPIRATORY TRACT INFECTION [None]
